FAERS Safety Report 6939202-9 (Version None)
Quarter: 2010Q3

REPORT INFORMATION
  Report Type: 
  Country: None (occurrence: None)
  Receive Date: 20100824
  Receipt Date: 20100812
  Transmission Date: 20110219
  Serious: Yes (Death, Hospitalization, Other)
  Sender: FDA-Public Use
  Company Number: BR-PFIZER INC-2010087752

PATIENT
  Age: 69 Year
  Sex: Male

DRUGS (2)
  1. VIAGRA [Suspect]
     Indication: SEXUAL DYSFUNCTION
     Dosage: 50 MG, AS NEEDED, SPORADICALLY
     Route: 048
     Dates: start: 20090101
  2. TEGRETOL [Concomitant]
     Dosage: 200 MG, 2X/DAY
     Route: 048

REACTIONS (3)
  - CARDIAC DISORDER [None]
  - CARDIAC VALVE DISEASE [None]
  - MULTI-ORGAN FAILURE [None]
